FAERS Safety Report 5603239-2 (Version None)
Quarter: 2008Q1

REPORT INFORMATION
  Report Type: 
  Country: None (occurrence: None)
  Receive Date: 20080123
  Receipt Date: 20080108
  Transmission Date: 20080703
  Serious: Yes (Other)
  Sender: FDA-Public Use
  Company Number: B0503895A

PATIENT
  Age: 6 Year
  Sex: Male

DRUGS (2)
  1. TOPOTECAN HYDROCHLORIDE STERILE POWDER (TOPOTECAN) [Suspect]
     Indication: BRAIN NEOPLASM
     Dosage: 3 MG/M2 /TWICE PER DAY / ORAL
     Route: 048
  2. DOXORUBICIN HCL [Suspect]
     Indication: BRAIN NEOPLASM
     Dosage: 40 MG/M2 / MONTHLY / INTRAVENOUS INFUS
     Route: 042

REACTIONS (5)
  - DERMATITIS [None]
  - HAEMATOTOXICITY [None]
  - PALMAR-PLANTAR ERYTHRODYSAESTHESIA SYNDROME [None]
  - STOMATITIS [None]
  - VOMITING [None]
